FAERS Safety Report 5331086-8 (Version None)
Quarter: 2007Q2

REPORT INFORMATION
  Report Type: 
  Country: None (occurrence: None)
  Receive Date: 20070518
  Receipt Date: 20070518
  Transmission Date: 20071010
  Serious: Yes (Hospitalization)
  Sender: FDA-Public Use
  Company Number: None

PATIENT
  Age: 80 Year
  Sex: Male
  Weight: 91.8 kg

DRUGS (3)
  1. INDOMETHACIN [Suspect]
     Indication: CARDIAC FAILURE CONGESTIVE
     Dosage: 50 MG TID PO  (DURATION: { 14 DAYS)
     Route: 048
     Dates: start: 20070508, end: 20070515
  2. INDOMETHACIN [Suspect]
     Indication: GOUT
     Dosage: 50 MG TID PO  (DURATION: { 14 DAYS)
     Route: 048
     Dates: start: 20070508, end: 20070515
  3. LISINOPRIL [Suspect]
     Dosage: 5 MG BID PO
     Route: 048

REACTIONS (9)
  - BLOOD CREATININE INCREASED [None]
  - BLOOD MAGNESIUM INCREASED [None]
  - BLOOD PHOSPHORUS INCREASED [None]
  - BLOOD POTASSIUM INCREASED [None]
  - BLOOD UREA INCREASED [None]
  - BRAIN NATRIURETIC PEPTIDE INCREASED [None]
  - CREATININE URINE INCREASED [None]
  - GOUT [None]
  - TROPONIN T INCREASED [None]
